FAERS Safety Report 8413984-1 (Version None)
Quarter: 2012Q2

REPORT INFORMATION
  Report Type: 
  Country: None (occurrence: None)
  Receive Date: 20120605
  Receipt Date: 20120531
  Transmission Date: 20120825
  Serious: Yes (Life-Threatening)
  Sender: FDA-Public Use
  Company Number: CH-ASTRAZENECA-2012SE36626

PATIENT
  Age: 63 Year
  Sex: Male

DRUGS (13)
  1. LYRICA [Concomitant]
     Route: 048
     Dates: start: 20120101
  2. IMIPENEM AND CILASTATIN SODIUM [Suspect]
     Indication: BACTERIAL INFECTION
     Route: 048
     Dates: start: 20110901
  3. LANTUS [Concomitant]
     Dates: start: 20110901
  4. ROCEPHIN [Suspect]
     Indication: BACTERIAL INFECTION
     Route: 041
     Dates: start: 20110901, end: 20120101
  5. PRIMPERAN TAB [Concomitant]
     Route: 048
     Dates: start: 20110901
  6. OXAZEPAM [Concomitant]
     Dosage: AS NECESSARY
  7. CITALOPRAM HYDROBROMIDE [Suspect]
     Indication: DEPRESSION
     Route: 048
     Dates: start: 20110901, end: 20120101
  8. LORAZEPAM [Concomitant]
     Dosage: AS NECESSARY
  9. NEXIUM [Suspect]
     Route: 048
  10. TASIGNA [Suspect]
     Indication: MYELOID LEUKAEMIA
     Route: 048
     Dates: start: 20101001
  11. ACETAMINOPHEN [Suspect]
     Indication: PAIN
     Route: 048
     Dates: start: 20110901, end: 20120101
  12. ZINACEF [Suspect]
     Indication: BACTERIAL INFECTION
     Route: 041
     Dates: start: 20110901
  13. ENOXAPARIN SODIUM [Suspect]
     Route: 058
     Dates: start: 20110901

REACTIONS (2)
  - CONDITION AGGRAVATED [None]
  - CHOLESTATIC LIVER INJURY [None]
